FAERS Safety Report 8356000-2 (Version None)
Quarter: 2012Q2

REPORT INFORMATION
  Report Type: 
  Country: None (occurrence: None)
  Receive Date: 20120514
  Receipt Date: 20120511
  Transmission Date: 20120825
  Serious: No
  Sender: FDA-Public Use
  Company Number: US-PFIZER INC-2012115781

PATIENT
  Sex: Male

DRUGS (1)
  1. CELEBREX [Suspect]
     Dosage: 200 MG

REACTIONS (3)
  - INCORRECT DOSE ADMINISTERED [None]
  - ABDOMINAL PAIN UPPER [None]
  - CHEST PAIN [None]
